FAERS Safety Report 19423900 (Version 4)
Quarter: 2021Q4

REPORT INFORMATION
  Report Type: Spontaneous
  Country: US (occurrence: US)
  Receive Date: 20210616
  Receipt Date: 20211105
  Transmission Date: 20220304
  Serious: Yes (Other)
  Sender: FDA-Public Use
  Company Number: US-PFIZER INC-2020343304

PATIENT
  Age: 70 Year
  Sex: Female

DRUGS (5)
  1. LYRICA [Suspect]
     Active Substance: PREGABALIN
     Indication: Fibromyalgia
     Dosage: 4 DF, DAILY
  2. LYRICA [Suspect]
     Active Substance: PREGABALIN
     Indication: Essential tremor
     Dosage: 3 DF, DAILY
  3. LYRICA [Suspect]
     Active Substance: PREGABALIN
     Indication: Pain
     Dosage: 75 MG, 4X/DAY (TAKE 1 CAPSULE BY MOUTH 4 TIMES A DAY AS DIRECTED BY PHYSICIAN)
     Route: 048
  4. LYRICA [Suspect]
     Active Substance: PREGABALIN
     Indication: Lumbar spinal stenosis
  5. LYRICA [Suspect]
     Active Substance: PREGABALIN
     Indication: Osteoarthritis

REACTIONS (4)
  - Cerebrovascular accident [Unknown]
  - Paraesthesia [Unknown]
  - Prescription drug used without a prescription [Unknown]
  - Intentional product use issue [Unknown]
